FAERS Safety Report 4600563-7 (Version None)
Quarter: 2005Q1

REPORT INFORMATION
  Report Type: 
  Country: None (occurrence: None)
  Receive Date: 20050304
  Receipt Date: 20050217
  Transmission Date: 20050727
  Serious: Yes (Life-Threatening)
  Sender: FDA-Public Use
  Company Number: MAG-2005-0000334

PATIENT
  Age: 58 Year
  Sex: Male

DRUGS (9)
  1. OXYCODONE HCL [Suspect]
     Dosage: 60 MG, DAILY, ORAL
     Route: 048
     Dates: start: 20050117, end: 20050117
  2. CARBENIN (PANIPENEM, BETAMIPRON) [Suspect]
     Indication: PNEUMONIA
     Dosage: 1 GRAM, DAILY, IV DRIP
     Route: 041
     Dates: start: 20050117, end: 20050117
  3. LOXONIN (LOXOPROFEN SODIUM) [Concomitant]
  4. DEPAS (ETIZOLAM) [Concomitant]
  5. TEGRETOL [Concomitant]
  6. SULFAMETHOXAZOLE + TRIMETHOPRIM [Concomitant]
  7. VEGETAMIN (PHENOBARBITAL, PROMETHAZINE HYDROCHLORIDE, CHLORPROMAZINE H [Concomitant]
  8. SOLU-MEDROL [Concomitant]
  9. ANTIBACTERIALS [Concomitant]

REACTIONS (3)
  - ANAPHYLACTIC SHOCK [None]
  - BODY TEMPERATURE INCREASED [None]
  - VOMITING [None]
